FAERS Safety Report 5142709-0 (Version None)
Quarter: 2006Q4

REPORT INFORMATION
  Report Type: 
  Country: None (occurrence: None)
  Receive Date: 20061027
  Receipt Date: 20060922
  Transmission Date: 20070319
  Serious: Yes (Other)
  Sender: FDA-Public Use
  Company Number: 2006BH014132

PATIENT
  Age: 61 Year
  Sex: Male
  Weight: 92 kg

DRUGS (2)
  1. PHYSIONEAL 35 (PHYSIONEAL 35 GLUCOSE AND ELECTROLYTE SOLUTION) [Suspect]
     Indication: RENAL FAILURE CHRONIC
     Dosage: 2 L; 4X A DAY; IP
     Route: 033
  2. EXTRANEAL [Suspect]
     Indication: RENAL FAILURE CHRONIC
     Dosage: EVERY DAY; IP
     Route: 033

REACTIONS (4)
  - DIALYSIS DEVICE COMPLICATION [None]
  - PERITONITIS [None]
  - STAPHYLOCOCCAL INFECTION [None]
  - TREATMENT NONCOMPLIANCE [None]
